FAERS Safety Report 5697681-1 (Version None)
Quarter: 2008Q2

REPORT INFORMATION
  Report Type: 
  Country: None (occurrence: None)
  Receive Date: 20080408
  Receipt Date: 20080401
  Transmission Date: 20081010
  Serious: Yes (Other)
  Sender: FDA-Public Use
  Company Number: A0718655A

PATIENT
  Age: 56 Year
  Sex: Male

DRUGS (2)
  1. ADVAIR HFA [Suspect]
     Indication: WHEEZING
     Dosage: 1PUFF TWICE PER DAY
     Route: 055
     Dates: start: 20080328
  2. CONCURRENT MEDICATIONS [Concomitant]

REACTIONS (2)
  - ANGINA PECTORIS [None]
  - CHEST PAIN [None]
